FAERS Safety Report 6180780-8 (Version None)
Quarter: 2009Q2

REPORT INFORMATION
  Report Type: 
  Country: None (occurrence: None)
  Receive Date: 20090504
  Receipt Date: 20090415
  Transmission Date: 20091009
  Serious: Yes (Hospitalization)
  Sender: FDA-Public Use
  Company Number: 2008-177919-NL

PATIENT
  Age: 26 Year
  Sex: Female
  Weight: 88.9 kg

DRUGS (2)
  1. NUVARING [Suspect]
     Indication: CONTRACEPTION
     Dates: start: 20050401, end: 20051202
  2. ALBUTEROL [Concomitant]

REACTIONS (17)
  - ASTHMA [None]
  - BLOOD OSMOLARITY DECREASED [None]
  - BLOOD PRESSURE DIASTOLIC DECREASED [None]
  - BODY TEMPERATURE DECREASED [None]
  - CAESAREAN SECTION [None]
  - ELECTROCARDIOGRAM ST-T CHANGE [None]
  - HAEMOPTYSIS [None]
  - HEART RATE INCREASED [None]
  - HYPOKALAEMIA [None]
  - HYPONATRAEMIA [None]
  - NAUSEA [None]
  - PAIN [None]
  - PNEUMONIA [None]
  - PREGNANCY [None]
  - PULMONARY EMBOLISM [None]
  - RESPIRATORY RATE INCREASED [None]
  - VOMITING [None]
